FAERS Safety Report 12755802 (Version 2)
Quarter: 2016Q3

REPORT INFORMATION
  Report Type: Spontaneous
  Country: JP (occurrence: JP)
  Receive Date: 20160916
  Receipt Date: 20160928
  Transmission Date: 20161109
  Serious: Yes (Disabling, Other)
  Sender: FDA-Public Use
  Company Number: PHHY2016JP126744

PATIENT
  Age: 80 Year
  Sex: Male

DRUGS (2)
  1. ZOLEDRONATE [Suspect]
     Active Substance: ZOLEDRONIC ACID
     Indication: PROSTATE CANCER
     Dosage: UNK
     Route: 042
     Dates: end: 201106
  2. PAMIDRONATE [Suspect]
     Active Substance: PAMIDRONATE DISODIUM
     Indication: PROSTATE CANCER
     Dosage: UNK
     Route: 042
     Dates: end: 201106

REACTIONS (2)
  - Bone disorder [Recovering/Resolving]
  - Osteonecrosis of jaw [Recovering/Resolving]
